FAERS Safety Report 6224877-2 (Version None)
Quarter: 2009Q2

REPORT INFORMATION
  Report Type: 
  Country: None (occurrence: None)
  Receive Date: 20090612
  Receipt Date: 20090331
  Transmission Date: 20091009
  Serious: Yes (Other)
  Sender: FDA-Public Use
  Company Number: US-ABBOTT-09P-163-0565862-00

PATIENT
  Sex: Female
  Weight: 52.664 kg

DRUGS (6)
  1. HUMIRA [Suspect]
     Indication: CROHN'S DISEASE
     Dates: start: 20081101, end: 20081101
  2. HUMIRA [Suspect]
     Dates: start: 20081116, end: 20081116
  3. HUMIRA [Suspect]
     Dates: start: 20081130, end: 20081217
  4. HUMIRA [Suspect]
     Dates: start: 20090116
  5. PRILOSEC [Concomitant]
     Indication: HIATUS HERNIA
     Dosage: UNKNOWN
  6. PRILOSEC [Concomitant]
     Indication: GASTRITIS

REACTIONS (6)
  - ERUCTATION [None]
  - FALL [None]
  - GASTRITIS [None]
  - HIATUS HERNIA [None]
  - WEIGHT DECREASED [None]
  - WRIST FRACTURE [None]
